FAERS Safety Report 9002634 (Version 3)
Quarter: 2015Q3

REPORT INFORMATION
  Report Type: Spontaneous
  Country: JP (occurrence: None)
  Receive Date: 20121226
  Receipt Date: 20150817
  Transmission Date: 20151125
  Serious: Yes (Other)
  Sender: FDA-Public Use
  Company Number: 2008JP003688

PATIENT
  Age: 37 Year
  Sex: Female
  Weight: 56 kg

DRUGS (21)
  1. MUCOSTA (REBAMIPIDE) [Concomitant]
  2. ZADITEN (KETOTIFEN FUARATE) [Concomitant]
  3. FOSAMAC (ALENDRONATE SODIUM) [Concomitant]
  4. GLAKAY (MENATETRENONE) [Concomitant]
  5. PREDNISOLONE (PREDNISOLONE) [Suspect]
     Active Substance: PREDNISOLONE
     Indication: LUPUS NEPHRITIS
     Route: 048
     Dates: end: 20071002
  6. CRESTOR (ROSUVASTATIN CALCIUM) [Concomitant]
  7. BENZALIN /00036201/ (NITRAZEPAM) [Concomitant]
  8. CERCINE (DIAZEPAM) [Concomitant]
  9. PROGRAF [Suspect]
     Active Substance: TACROLIMUS\TACROLIMUS ANHYDROUS
     Indication: LUPUS NEPHRITIS
     Route: 048
     Dates: start: 20070919, end: 20071002
  10. ALLEGRA [Concomitant]
     Active Substance: FEXOFENADINE HYDROCHLORIDE
  11. UROCALUN /00563901/ (SALICIN) [Concomitant]
  12. PROTOPIC [Concomitant]
     Active Substance: TACROLIMUS
  13. CELECOX [Suspect]
     Active Substance: CELECOXIB
     Indication: ARTHRALGIA
     Route: 048
     Dates: start: 20070919
  14. LAXOBERON (SODIUM PICOSULFATE) [Concomitant]
  15. LASIX [Concomitant]
     Active Substance: FUROSEMIDE
  16. LUVOX [Concomitant]
     Active Substance: FLUVOXAMINE MALEATE
  17. MAGMITT (MAGNESIUM OXIDE) [Concomitant]
  18. LENDORMIN (BROTIZOLAM) [Concomitant]
  19. ALLELOCK (OLOPATADINE HYDROCHLORIDE) [Concomitant]
  20. LOCOID (HYDROCORTISONE BUTYRATE) [Concomitant]
  21. INTEBAN (INDOMETACIN) [Concomitant]

REACTIONS (6)
  - Erythema [None]
  - Calculus ureteric [None]
  - Abdominal pain upper [None]
  - Insomnia [None]
  - Depression [None]
  - Nephrolithiasis [None]

NARRATIVE: CASE EVENT DATE: 20080215
